FAERS Safety Report 16597158 (Version 1)
Quarter: 2019Q3

REPORT INFORMATION
  Report Type: Spontaneous
  Country: FR (occurrence: FR)
  Receive Date: 20190719
  Receipt Date: 20190719
  Transmission Date: 20191004
  Serious: Yes (Hospitalization, Other)
  Sender: FDA-Public Use
  Company Number: FR-PFIZER INC-2019308461

PATIENT
  Age: 42 Year
  Sex: Female

DRUGS (2)
  1. METHOTREXATE SODIUM. [Suspect]
     Active Substance: METHOTREXATE SODIUM
     Indication: CROHN^S DISEASE
     Dosage: 1 DF, UNK
     Route: 058
     Dates: start: 201904
  2. RAMIPRIL. [Suspect]
     Active Substance: RAMIPRIL
     Indication: ARTERITIS CORONARY
     Dosage: UNK
     Route: 048
     Dates: start: 201812, end: 201905

REACTIONS (1)
  - Angioedema [Not Recovered/Not Resolved]

NARRATIVE: CASE EVENT DATE: 201905
